FAERS Safety Report 5095308-3 (Version None)
Quarter: 2006Q3

REPORT INFORMATION
  Report Type: 
  Country: None (occurrence: None)
  Receive Date: 20060901
  Receipt Date: 20060823
  Transmission Date: 20061208
  Serious: Yes (Life-Threatening)
  Sender: FDA-Public Use
  Company Number: GB-BRISTOL-MYERS SQUIBB COMPANY-13485800

PATIENT
  Age: 60 Year
  Sex: Male
  Weight: 129 kg

DRUGS (15)
  1. KENALOG-40 [Suspect]
     Indication: OSTEOARTHRITIS
     Route: 014
     Dates: start: 20060810, end: 20060810
  2. LIDOCAINE HCL [Suspect]
     Indication: OSTEOARTHRITIS
     Route: 014
     Dates: start: 20060810, end: 20060810
  3. ASPIRIN [Concomitant]
     Route: 048
  4. BEZAFIBRATE [Concomitant]
     Route: 048
  5. BISOPROLOL FUMARATE [Concomitant]
     Route: 048
  6. DICLOFENAC SODIUM [Concomitant]
     Route: 048
  7. GABAPENTIN [Concomitant]
     Route: 048
  8. GTN-S [Concomitant]
     Route: 048
  9. ISOSORBIDE MONONITRATE [Concomitant]
     Route: 048
  10. LANSOPRAZOLE [Concomitant]
     Route: 048
  11. NICORANDIL [Concomitant]
     Route: 048
  12. RAMIPRIL [Concomitant]
     Route: 048
  13. ALBUTEROL SPIROS [Concomitant]
     Route: 055
  14. TAMSULOSIN HCL [Concomitant]
     Route: 048
  15. VERAPAMIL [Concomitant]
     Route: 048

REACTIONS (4)
  - CHEST DISCOMFORT [None]
  - DYSPNOEA [None]
  - THROAT TIGHTNESS [None]
  - VOMITING [None]
